FAERS Safety Report 17800995 (Version 12)
Quarter: 2023Q2

REPORT INFORMATION
  Report Type: Report from Study
  Country: US (occurrence: US)
  Receive Date: 20200519
  Receipt Date: 20230420
  Transmission Date: 20230722
  Serious: Yes (Other)
  Sender: FDA-Public Use
  Company Number: US-AKCEA THERAPEUTICS-2020IS001188

PATIENT

DRUGS (2)
  1. TEGSEDI [Suspect]
     Active Substance: INOTERSEN SODIUM
     Indication: Hereditary neuropathic amyloidosis
     Dosage: 284 MG, QW
     Route: 058
     Dates: start: 20190806
  2. TEGSEDI [Suspect]
     Active Substance: INOTERSEN SODIUM
     Indication: Polyneuropathy
     Dosage: 284 MG, QW
     Route: 058
     Dates: start: 20200512

REACTIONS (19)
  - Urine protein/creatinine ratio increased [Not Recovered/Not Resolved]
  - Platelet count decreased [Not Recovered/Not Resolved]
  - White blood cells urine positive [Not Recovered/Not Resolved]
  - Bacterial test positive [Not Recovered/Not Resolved]
  - Nitrite urine present [Unknown]
  - Urine leukocyte esterase positive [Not Recovered/Not Resolved]
  - Urinary tract infection [Unknown]
  - Laboratory test abnormal [Unknown]
  - Urinary sediment present [Unknown]
  - Urinary casts present [Unknown]
  - Urine abnormality [Not Recovered/Not Resolved]
  - Protein urine present [Unknown]
  - Urine ketone body present [Unknown]
  - Treatment noncompliance [Unknown]
  - Blood creatinine increased [Unknown]
  - Urinary occult blood positive [Unknown]
  - Red blood cells urine positive [Unknown]
  - Pyuria [Unknown]
  - Blood creatinine abnormal [Unknown]

NARRATIVE: CASE EVENT DATE: 20200829
